FAERS Safety Report 19082741 (Version 1)
Quarter: 2021Q2

REPORT INFORMATION
  Report Type: Spontaneous
  Country: US (occurrence: US)
  Receive Date: 20210401
  Receipt Date: 20210401
  Transmission Date: 20210717
  Serious: Yes (Other)
  Sender: FDA-Public Use
  Company Number: US-LUPIN PHARMACEUTICALS INC.-2021-04111

PATIENT
  Age: 38 Year
  Sex: Male

DRUGS (4)
  1. GABAPENTIN. [Suspect]
     Active Substance: GABAPENTIN
     Indication: AFFECTIVE DISORDER
     Dosage: UNK
     Route: 065
  2. FLUOXETINE [Suspect]
     Active Substance: FLUOXETINE HYDROCHLORIDE
     Indication: DEPRESSION
     Dosage: UNK
     Route: 065
  3. FLUOXETINE [Suspect]
     Active Substance: FLUOXETINE HYDROCHLORIDE
     Indication: IMPULSIVE BEHAVIOUR
  4. GABAPENTIN. [Suspect]
     Active Substance: GABAPENTIN
     Indication: MIGRAINE

REACTIONS (3)
  - Gait inability [Unknown]
  - Headache [Unknown]
  - Oedema peripheral [Unknown]
